FAERS Safety Report 5693402-7 (Version None)
Quarter: 2008Q2

REPORT INFORMATION
  Report Type: 
  Country: None (occurrence: None)
  Receive Date: 20080403
  Receipt Date: 20080326
  Transmission Date: 20081010
  Serious: Yes (Hospitalization, Other)
  Sender: FDA-Public Use
  Company Number: PHBS2008NO03219

PATIENT
  Age: 54 Year
  Sex: Female

DRUGS (1)
  1. VOLTAREN [Suspect]
     Indication: MUSCULOSKELETAL PAIN
     Dosage: 2 TABS/DAY
     Route: 048
     Dates: start: 20080225, end: 20080225

REACTIONS (11)
  - ABDOMINAL PAIN [None]
  - BLOOD URINE PRESENT [None]
  - DYSKINESIA [None]
  - HYPERREFLEXIA [None]
  - LISTLESS [None]
  - LOSS OF CONSCIOUSNESS [None]
  - NAUSEA [None]
  - PRURITUS GENERALISED [None]
  - SYNCOPE [None]
  - URINE KETONE BODY PRESENT [None]
  - URINE LEUKOCYTE ESTERASE POSITIVE [None]
